FAERS Safety Report 7786367-5 (Version None)
Quarter: 2011Q3

REPORT INFORMATION
  Report Type: 
  Country: None (occurrence: None)
  Receive Date: 20110929
  Receipt Date: 20110926
  Transmission Date: 20111222
  Serious: Yes (Hospitalization)
  Sender: FDA-Public Use
  Company Number: PHEH2011US05168

PATIENT
  Sex: Male
  Weight: 55.329 kg

DRUGS (1)
  1. EXJADE [Suspect]
     Indication: NEOPLASM
     Dosage: 2250 MG, DAILY
     Route: 048
     Dates: start: 20101028

REACTIONS (1)
  - PNEUMONIA [None]
